FAERS Safety Report 14649036 (Version 1)
Quarter: 2018Q1

REPORT INFORMATION
  Report Type: Spontaneous
  Country: IT (occurrence: IT)
  Receive Date: 20180316
  Receipt Date: 20180316
  Transmission Date: 20180509
  Serious: Yes (Hospitalization)
  Sender: FDA-Public Use
  Company Number: IT-PFIZER INC-2018103599

PATIENT
  Age: 55 Year
  Sex: Male
  Weight: 86 kg

DRUGS (3)
  1. PIBRENTASVIR [Concomitant]
     Active Substance: PIBRENTASVIR
     Indication: CHRONIC HEPATITIS C
     Dosage: 40 MG, 1X/DAY
     Route: 048
     Dates: start: 20171208, end: 20180202
  2. GLECAPREVIR [Concomitant]
     Active Substance: GLECAPREVIR
     Indication: CHRONIC HEPATITIS C
     Dosage: 100 MG, 1X/DAY
     Route: 048
     Dates: start: 20171208, end: 20180202
  3. SALAZOPYRIN EN [Suspect]
     Active Substance: SULFASALAZINE
     Indication: CROHN^S DISEASE
     Dosage: 1000 MG, 1X/DAY
     Route: 048

REACTIONS (3)
  - Hyponatraemia [Recovering/Resolving]
  - Acute kidney injury [Recovering/Resolving]
  - Dehydration [Recovering/Resolving]

NARRATIVE: CASE EVENT DATE: 20180119
